FAERS Safety Report 13304451 (Version 1)
Quarter: 2017Q1

REPORT INFORMATION
  Report Type: Spontaneous
  Country: US (occurrence: US)
  Receive Date: 20170308
  Receipt Date: 20170308
  Transmission Date: 20170428
  Serious: Yes (Hospitalization, Other)
  Sender: FDA-Public Use
  Company Number: US-ACCORD-048846

PATIENT
  Age: 35 Year
  Sex: Female

DRUGS (4)
  1. ACETYLSALICYLIC ACID [Suspect]
     Active Substance: ASPIRIN
     Indication: PRODUCT USED FOR UNKNOWN INDICATION
  2. CLOPIDOGREL [Suspect]
     Active Substance: CLOPIDOGREL BISULFATE
     Indication: PRODUCT USED FOR UNKNOWN INDICATION
  3. CEFAZOLIN [Concomitant]
     Active Substance: CEFAZOLIN
     Route: 042
  4. CEFALEXIN [Concomitant]
     Active Substance: CEPHALEXIN
     Route: 048

REACTIONS (3)
  - Bacteraemia [Recovering/Resolving]
  - Implant site infection [Recovering/Resolving]
  - Implant site haematoma [Unknown]
